FAERS Safety Report 9690580 (Version 1)
Quarter: 2013Q4

REPORT INFORMATION
  Report Type: Report from Study
  Country: US (occurrence: US)
  Receive Date: 20131115
  Receipt Date: 20131115
  Transmission Date: 20140711
  Serious: Yes (Death)
  Sender: FDA-Public Use
  Company Number: PHEH2013US023903

PATIENT
  Age: 87 Year
  Sex: Female

DRUGS (1)
  1. SANDIMMUN [Suspect]
     Dosage: 100 MG, UNK

REACTIONS (1)
  - Death [Fatal]
